FAERS Safety Report 6674860-8 (Version None)
Quarter: 2010Q2

REPORT INFORMATION
  Report Type: 
  Country: None (occurrence: None)
  Receive Date: 20100409
  Receipt Date: 20100325
  Transmission Date: 20101027
  Serious: Yes (Other)
  Sender: FDA-Public Use
  Company Number: US-BAUSCH-2010BL001799

PATIENT
  Age: 5 Day
  Weight: 1 kg

DRUGS (1)
  1. NYSTATIN [Suspect]
     Indication: PROPHYLAXIS
     Route: 048

REACTIONS (1)
  - SEPSIS NEONATAL [None]
